FAERS Safety Report 4712223-2 (Version None)
Quarter: 2005Q3

REPORT INFORMATION
  Report Type: 
  Country: None (occurrence: None)
  Receive Date: 20050712
  Receipt Date: 20050504
  Transmission Date: 20060218
  Serious: Yes (Other)
  Sender: FDA-Public Use
  Company Number: AU-SANOFI-SYNTHELABO-A01200502967

PATIENT
  Sex: Male

DRUGS (3)
  1. STILNOX [Suspect]
     Indication: OVERDOSE
     Route: 048
  2. COCAINE [Interacting]
     Indication: DRUG DEPENDENCE
     Dosage: UNK
     Route: 045
  3. ALCOHOL [Concomitant]
     Dosage: UNK
     Route: 048

REACTIONS (4)
  - AMNESIA [None]
  - DRUG TOXICITY [None]
  - OVERDOSE [None]
  - ROAD TRAFFIC ACCIDENT [None]
